FAERS Safety Report 8790332 (Version 1)
Quarter: 2012Q4

REPORT INFORMATION
  Report Type: 
  Country: DE (occurrence: DE)
  Receive Date: 20120917
  Receipt Date: 20120917
  Transmission Date: 20130627
  Serious: Yes (Hospitalization, Other)
  Sender: FDA-Public Use
  Company Number: DE-MYLANLABS-2012S1018272

PATIENT
  Age: 0 Year
  Sex: Female
  Weight: 2.45 kg

DRUGS (1)
  1. RAMIPRIL [Suspect]
     Route: 063
     Dates: start: 20120407, end: 20120428

REACTIONS (3)
  - Exposure during breast feeding [Recovered/Resolved]
  - Aphthous stomatitis [Recovered/Resolved]
  - Poor weight gain neonatal [Recovered/Resolved]
